FAERS Safety Report 11431073 (Version 1)
Quarter: 2015Q3

REPORT INFORMATION
  Report Type: Spontaneous
  Country: AE (occurrence: AE)
  Receive Date: 20150828
  Receipt Date: 20150828
  Transmission Date: 20151125
  Serious: Yes (Other)
  Sender: FDA-Public Use
  Company Number: AE-ASTELLAS-2015EU006848

PATIENT

DRUGS (1)
  1. XTANDI [Suspect]
     Active Substance: ENZALUTAMIDE
     Indication: PROSTATE CANCER METASTATIC
     Route: 048
     Dates: start: 201411, end: 20150526

REACTIONS (2)
  - Road traffic accident [Unknown]
  - Incoherent [Unknown]

NARRATIVE: CASE EVENT DATE: 201505
